FAERS Safety Report 21711152 (Version 2)
Quarter: 2023Q1

REPORT INFORMATION
  Report Type: Spontaneous
  Country: US (occurrence: US)
  Receive Date: 20221212
  Receipt Date: 20230310
  Transmission Date: 20230417
  Serious: No
  Sender: FDA-Public Use
  Company Number: US-SA-SAC20221207001422

PATIENT
  Sex: Female

DRUGS (16)
  1. AUBAGIO [Suspect]
     Active Substance: TERIFLUNOMIDE
     Indication: Multiple sclerosis
     Dosage: 14 MG, QD
     Route: 048
  2. ZYRTEC [Concomitant]
     Active Substance: CETIRIZINE HYDROCHLORIDE
     Dosage: ZYRTEC TWO TO FOUR TIMES A DAY FOR SYMPTOMS
  3. DOXEPIN [Concomitant]
     Active Substance: DOXEPIN
     Indication: Sleep disorder
  4. LOSARTAN POTASSIUM [Concomitant]
     Active Substance: LOSARTAN POTASSIUM
  5. VITAMIN D2 [Concomitant]
     Active Substance: ERGOCALCIFEROL
  6. AG [Concomitant]
     Dosage: 1000MG
  7. METFORMIN HYDROCHLORIDE [Concomitant]
     Active Substance: METFORMIN HYDROCHLORIDE
  8. LABETALOL HYDROCHLORIDE [Concomitant]
     Active Substance: LABETALOL HYDROCHLORIDE
  9. JARDIANCE [Concomitant]
     Active Substance: EMPAGLIFLOZIN
  10. SIMVASTATIN [Concomitant]
     Active Substance: SIMVASTATIN
  11. LISINOPRIL [Concomitant]
     Active Substance: LISINOPRIL
  12. NITROFURANTOIN [Concomitant]
     Active Substance: NITROFURANTOIN
  13. TACROLIMUS [Concomitant]
     Active Substance: TACROLIMUS
  14. NAPROXEN [Concomitant]
     Active Substance: NAPROXEN
  15. BIOTIN [Concomitant]
     Active Substance: BIOTIN
  16. PLEGRIDY [Concomitant]
     Active Substance: PEGINTERFERON BETA-1A

REACTIONS (4)
  - Dermatitis [Unknown]
  - Pruritus [Unknown]
  - Eczema [Unknown]
  - Skin disorder [Unknown]
